FAERS Safety Report 6404735-0 (Version None)
Quarter: 2009Q4

REPORT INFORMATION
  Report Type: 
  Country: None (occurrence: None)
  Receive Date: 20091016
  Receipt Date: 20091006
  Transmission Date: 20100525
  Serious: Yes (Other)
  Sender: FDA-Public Use
  Company Number: FR-SANOFI-SYNTHELABO-A02200700602

PATIENT
  Sex: Male
  Weight: 2.85 kg

DRUGS (6)
  1. PLAQUENIL [Suspect]
     Indication: CUTANEOUS LUPUS ERYTHEMATOSUS
     Route: 064
     Dates: end: 20070212
  2. PLAQUENIL [Suspect]
     Route: 064
     Dates: start: 20070322, end: 20070921
  3. TARDYFERON B9 [Concomitant]
     Indication: DRUG USE FOR UNKNOWN INDICATION
     Route: 064
     Dates: start: 20070302
  4. ASPEGIC 1000 [Concomitant]
     Indication: DRUG USE FOR UNKNOWN INDICATION
     Route: 064
     Dates: start: 20070302
  5. TRANDATE [Concomitant]
     Indication: HYPERTENSION
     Route: 064
     Dates: start: 20070210
  6. TEMERIT [Concomitant]
     Indication: HYPERTENSION
     Route: 064
     Dates: end: 20070210

REACTIONS (5)
  - DACRYOSTENOSIS CONGENITAL [None]
  - DRUG EXPOSURE DURING PREGNANCY [None]
  - HEART RATE INCREASED [None]
  - NAEVUS FLAMMEUS [None]
  - PREMATURE BABY [None]
